FAERS Safety Report 19800169 (Version 1)
Quarter: 2021Q3

REPORT INFORMATION
  Report Type: Spontaneous
  Country: US (occurrence: US)
  Receive Date: 20210908
  Receipt Date: 20210908
  Transmission Date: 20211014
  Serious: No
  Sender: FDA-Public Use
  Company Number: US-DRREDDYS-SPO/USA/21/0139650

PATIENT
  Age: 31 Year

DRUGS (2)
  1. ZENATANE [Suspect]
     Active Substance: ISOTRETINOIN
     Indication: PRODUCT USED FOR UNKNOWN INDICATION
     Dosage: RMA ISSUE DATE: 20?NOVEMBER?2020 12:00:00 AM, 23?DECEMBER?2020 12:00:00 AM, 22?FEBRUARY?2021 12:00:0
  2. ACCUTANE [Suspect]
     Active Substance: ISOTRETINOIN
     Indication: PRODUCT USED FOR UNKNOWN INDICATION
     Dosage: RMA ISSUE DATE: 30?MARCH?2020 12:00:00 AM, 26?APRIL?2021 12:00:00 AM

REACTIONS (1)
  - Abdominal discomfort [Unknown]
